FAERS Safety Report 11813270 (Version 1)
Quarter: 2015Q4

REPORT INFORMATION
  Report Type: Spontaneous
  Country: US (occurrence: None)
  Receive Date: 20151208
  Receipt Date: 20151208
  Transmission Date: 20160305
  Serious: Yes (Hospitalization)
  Sender: FDA-Public Use
  Company Number: None

PATIENT
  Age: 43 Year
  Sex: Male
  Weight: 91.9 kg

DRUGS (11)
  1. GLUCOSAMINE [Concomitant]
     Active Substance: GLUCOSAMINE
  2. MAG OX [Concomitant]
     Active Substance: MAGNESIUM OXIDE
  3. MVI [Concomitant]
     Active Substance: VITAMINS
  4. WARFARIN [Suspect]
     Active Substance: WARFARIN
     Indication: ATRIAL FIBRILLATION
     Route: 048
  5. KCL [Concomitant]
     Active Substance: POTASSIUM CHLORIDE
  6. TOPROL XL [Concomitant]
     Active Substance: METOPROLOL SUCCINATE
  7. LASIX [Concomitant]
     Active Substance: FUROSEMIDE
  8. TIKOSYN [Concomitant]
     Active Substance: DOFETILIDE
  9. VIT. B6 [Concomitant]
  10. ECOTRIN [Suspect]
     Active Substance: ASPIRIN
     Indication: AORTIC STENOSIS
     Route: 048
  11. ECOTRIN [Suspect]
     Active Substance: ASPIRIN
     Indication: AORTIC VALVE REPLACEMENT
     Route: 048

REACTIONS (3)
  - Haemorrhage intracranial [None]
  - International normalised ratio decreased [None]
  - Brain oedema [None]

NARRATIVE: CASE EVENT DATE: 20150414
